FAERS Safety Report 18675633 (Version 2)
Quarter: 2021Q1

REPORT INFORMATION
  Report Type: Spontaneous
  Country: JP (occurrence: JP)
  Receive Date: 20201229
  Receipt Date: 20210112
  Transmission Date: 20210419
  Serious: Yes (Other)
  Sender: FDA-Public Use
  Company Number: JP-ROCHE-2691763

PATIENT
  Age: 74 Year
  Sex: Male

DRUGS (2)
  1. BEOVU [Suspect]
     Active Substance: BROLUCIZUMAB-DBLL
     Indication: POLYPOIDAL CHOROIDAL VASCULOPATHY
     Dosage: 6 MG
     Route: 031
     Dates: start: 20200811, end: 20200811
  2. GATIFLO [Concomitant]
     Active Substance: GATIFLOXACIN
     Indication: INFECTION PROPHYLAXIS
     Route: 047
     Dates: start: 20200808, end: 20200814

REACTIONS (3)
  - Retinal vein occlusion [Not Recovered/Not Resolved]
  - Uveitis [Not Recovered/Not Resolved]
  - Retinal vasculitis [Not Recovered/Not Resolved]

NARRATIVE: CASE EVENT DATE: 20200915
